FAERS Safety Report 7808550-2 (Version None)
Quarter: 2011Q4

REPORT INFORMATION
  Report Type: 
  Country: None (occurrence: None)
  Receive Date: 20111012
  Receipt Date: 20111007
  Transmission Date: 20120403
  Serious: Yes (Hospitalization, Other)
  Sender: FDA-Public Use
  Company Number: IT-JNJFOC-20111003379

PATIENT
  Sex: Female

DRUGS (7)
  1. ARIXTRA [Concomitant]
     Route: 065
  2. LEVOFLOXACIN [Suspect]
     Indication: PRODUCT USED FOR UNKNOWN INDICATION
     Route: 048
     Dates: start: 20110226, end: 20110307
  3. ESOMEPRAZOLE SODIUM [Concomitant]
     Route: 065
  4. FERROGRAD C [Concomitant]
     Route: 065
  5. CALCIUM CARBONATE [Concomitant]
     Route: 065
  6. CALCITRIOL [Concomitant]
     Route: 065
  7. SEROQUEL [Concomitant]
     Route: 065

REACTIONS (3)
  - DEHYDRATION [None]
  - CLOSTRIDIUM DIFFICILE COLITIS [None]
  - DIARRHOEA [None]
